FAERS Safety Report 4865941-X (Version None)
Quarter: 2005Q4

REPORT INFORMATION
  Report Type: 
  Country: None (occurrence: None)
  Receive Date: 20051226
  Receipt Date: 20051218
  Transmission Date: 20060501
  Serious: Yes (Other)
  Sender: FDA-Public Use
  Company Number: PHEH2005US13632

PATIENT
  Age: 76 Year
  Sex: Male

DRUGS (2)
  1. ZOMETA [Suspect]
     Indication: MULTIPLE MYELOMA
  2. AREDIA [Suspect]
     Indication: MULTIPLE MYELOMA

REACTIONS (12)
  - BONE OPERATION [None]
  - EAR DISCOMFORT [None]
  - GINGIVAL DISORDER [None]
  - IMPAIRED HEALING [None]
  - JAW FRACTURE [None]
  - LACRIMATION INCREASED [None]
  - ORAL INFECTION [None]
  - OSTEONECROSIS [None]
  - SINUSITIS [None]
  - TOOTH EXTRACTION [None]
  - TOOTH INFECTION [None]
  - WEIGHT DECREASED [None]
